FAERS Safety Report 4893291-4 (Version None)
Quarter: 2006Q1

REPORT INFORMATION
  Report Type: 
  Country: None (occurrence: None)
  Receive Date: 20060124
  Receipt Date: 20060111
  Transmission Date: 20060701
  Serious: Yes (Life-Threatening, Hospitalization, Other)
  Sender: FDA-Public Use
  Company Number: 2005149433

PATIENT
  Age: 77 Year
  Sex: Female
  Weight: 74 kg

DRUGS (22)
  1. LYRICA (PREGABALIN) [Suspect]
     Indication: DIABETIC NEUROPATHY
     Dosage: 150 MG (75 MG, 2 IN 1 D), ORAL
     Route: 048
     Dates: start: 20050720, end: 20050825
  2. EDRONAX (REBOXETINE) [Suspect]
     Indication: ILL-DEFINED DISORDER
     Dosage: 8 MG (4 MG, 2 IN 1 D), ORAL
     Route: 048
  3. QUETIAPINE FUMARATE [Suspect]
     Indication: ILL-DEFINED DISORDER
  4. DITROPAN [Suspect]
     Indication: ILL-DEFINED DISORDER
     Dosage: 15 MG (5 MG, 3 IN 1 D)
  5. DIAMOX [Suspect]
     Indication: CATARACT
     Dosage: 250 MG (250 MG, 1 IN 1 D)
     Dates: start: 20050801
  6. CODEINE (CODEINE) [Concomitant]
  7. DIAFORMIN (METFORMIN HYDROCHLORIDE) [Concomitant]
  8. MIXTARD HUMAN 70/30 [Concomitant]
  9. OMEPRAZOLE [Concomitant]
  10. GLIMEPIRIDE [Concomitant]
  11. COLOXYL WITH SENNA (DOCUSATE SODIUM, SENNOSIDE A+B) [Concomitant]
  12. FERROUS SULFATE/FOLIC ACID (FERROUS SULFATE, FOLIC ACID) [Concomitant]
  13. HIPREX [Concomitant]
  14. IRBESARTAN [Concomitant]
  15. FUROSEMIDE [Concomitant]
  16. DOMPERIDONE (DOMPERIDONE) [Concomitant]
  17. OSTELIN (ERGOCALCIFEROL) [Concomitant]
  18. ACETAMINOPHEN [Concomitant]
  19. CENTRUM (MINERALS NOS, VITAMINS NOS) [Concomitant]
  20. CHLORAMPHENICOL [Concomitant]
  21. DEXAMETHASONE [Concomitant]
  22. DICLOFENAC SODIUM [Concomitant]

REACTIONS (8)
  - CATARACT OPERATION [None]
  - COMA [None]
  - DEHYDRATION [None]
  - DEPRESSED LEVEL OF CONSCIOUSNESS [None]
  - HYPOPITUITARISM [None]
  - SEPSIS [None]
  - SOMNOLENCE [None]
  - UNEVALUABLE EVENT [None]
